FAERS Safety Report 5254517-0 (Version None)
Quarter: 2007Q1

REPORT INFORMATION
  Report Type: 
  Country: None (occurrence: None)
  Receive Date: 20070302
  Receipt Date: 20070220
  Transmission Date: 20070707
  Serious: Yes (Life-Threatening, Other)
  Sender: FDA-Public Use
  Company Number: PL-PFIZER INC-2007013109

PATIENT
  Sex: Male
  Weight: 64 kg

DRUGS (1)
  1. ZYVOX [Suspect]
     Route: 042
     Dates: start: 20070203, end: 20070204

REACTIONS (2)
  - RESPIRATORY ARREST [None]
  - SHOCK [None]
